FAERS Safety Report 8890454 (Version 2)
Quarter: 2012Q4

REPORT INFORMATION
  Report Type: 
  Country: US (occurrence: US)
  Receive Date: 20121106
  Receipt Date: 20121113
  Transmission Date: 20130627
  Serious: Yes (Death, Hospitalization)
  Sender: FDA-Public Use
  Company Number: US-009507513-1211USA000078

PATIENT
  Age: 72 Year
  Sex: Male
  Weight: 75.9 kg

DRUGS (2)
  1. VORINOSTAT [Suspect]
     Indication: GLIOBLASTOMA MULTIFORME
     Dosage: 300 mg, PO on day 1-5 weekly
     Route: 048
     Dates: start: 20120820, end: 20120928
  2. TEMOZOLOMIDE [Suspect]
     Indication: GLIOBLASTOMA MULTIFORME
     Dosage: 75 mg/m2, PO, qd
     Route: 048
     Dates: start: 20120820, end: 20120930

REACTIONS (3)
  - Lung infection [Fatal]
  - Dysarthria [Unknown]
  - Gait disturbance [Unknown]
